FAERS Safety Report 12542899 (Version 1)
Quarter: 2016Q3

REPORT INFORMATION
  Report Type: Spontaneous
  Country: US (occurrence: US)
  Receive Date: 20160710
  Receipt Date: 20160710
  Transmission Date: 20161109
  Serious: No
  Sender: FDA-Public Use
  Company Number: US-SHIRE-US201607412

PATIENT
  Age: 8 Year
  Sex: Male
  Weight: 45.81 kg

DRUGS (2)
  1. VYVANSE [Suspect]
     Active Substance: LISDEXAMFETAMINE DIMESYLATE
     Indication: PRODUCT USED FOR UNKNOWN INDICATION
     Dosage: UNK, 1X/DAY:QD
     Route: 048
     Dates: end: 2016
  2. VYVANSE [Suspect]
     Active Substance: LISDEXAMFETAMINE DIMESYLATE
     Dosage: UNK, 1X/DAY:QD
     Route: 048
     Dates: start: 2016

REACTIONS (3)
  - Tic [Unknown]
  - Abnormal loss of weight [Unknown]
  - Tremor [Unknown]

NARRATIVE: CASE EVENT DATE: 2016
